FAERS Safety Report 7678801-6 (Version None)
Quarter: 2011Q3

REPORT INFORMATION
  Report Type: 
  Country: None (occurrence: None)
  Receive Date: 20110811
  Receipt Date: 20110802
  Transmission Date: 20111222
  Serious: Yes (Hospitalization, Other)
  Sender: FDA-Public Use
  Company Number: US-ASTRAZENECA-2011SE46081

PATIENT
  Age: 80 Year
  Sex: Male

DRUGS (6)
  1. LOSARTAN POTASSIUM [Concomitant]
  2. STALEVO 100 [Concomitant]
  3. MULTI-VITAMIN [Concomitant]
  4. VYTORIN [Concomitant]
  5. SEROQUEL XR [Suspect]
     Route: 048
  6. SEROQUEL XR [Suspect]
     Route: 048

REACTIONS (3)
  - HIP FRACTURE [None]
  - HIP ARTHROPLASTY [None]
  - BLOOD GLUCOSE INCREASED [None]
